FAERS Safety Report 10676183 (Version 1)
Quarter: 2014Q4

REPORT INFORMATION
  Report Type: Report from Study
  Country: US (occurrence: US)
  Receive Date: 20141226
  Receipt Date: 20141226
  Transmission Date: 20150529
  Serious: No
  Sender: FDA-Public Use
  Company Number: US-AMGEN-USASL2014099638

PATIENT
  Age: 54 Year
  Sex: Female
  Weight: 61.68 kg

DRUGS (1)
  1. ENBREL [Suspect]
     Active Substance: ETANERCEPT
     Indication: RHEUMATOID ARTHRITIS
     Dosage: 50 MG, QWK
     Route: 058
     Dates: start: 201410

REACTIONS (5)
  - Injection site erythema [Unknown]
  - Endodontic procedure [Unknown]
  - Mouth swelling [Unknown]
  - Impaired healing [Unknown]
  - Headache [Unknown]

NARRATIVE: CASE EVENT DATE: 201410
